FAERS Safety Report 11786688 (Version 1)
Quarter: 2015Q4

REPORT INFORMATION
  Report Type: Spontaneous
  Country: GB (occurrence: GB)
  Receive Date: 20151130
  Receipt Date: 20151130
  Transmission Date: 20160305
  Serious: Yes (Life-Threatening)
  Sender: FDA-Public Use
  Company Number: GB-JNJFOC-20151125368

PATIENT
  Age: 63 Year

DRUGS (2)
  1. ITRACONAZOLE. [Suspect]
     Active Substance: ITRACONAZOLE
     Indication: ONYCHOMYCOSIS
     Route: 065
     Dates: start: 20150807, end: 20150911
  2. AMOROLFINE [Concomitant]
     Active Substance: AMOROLFINE
     Indication: ONYCHOMYCOSIS
     Route: 061
     Dates: start: 20150604

REACTIONS (2)
  - Liver function test abnormal [Recovered/Resolved]
  - Jaundice [Recovered/Resolved]
